FAERS Safety Report 7717587 (Version 3)
Quarter: 2013Q1

REPORT INFORMATION
  Report Type: Report from Study
  Country: UG (occurrence: UG)
  Receive Date: 20101217
  Receipt Date: 20130311
  Transmission Date: 20140127
  Serious: Yes (Other)
  Sender: FDA-Public Use
  Company Number: UG-ABBOTT-10P-165-0690507-00

PATIENT
  Age: 37 Year
  Sex: Female

DRUGS (5)
  1. ALUVIA TABLETS [Suspect]
     Indication: HIV INFECTION
     Route: 048
     Dates: start: 20101112
  2. ALUVIA TABLETS [Suspect]
     Route: 048
     Dates: start: 20110113, end: 20110114
  3. RALTEGRAVIR [Concomitant]
     Indication: HIV INFECTION
     Dates: start: 20101112
  4. BACTRIM [Concomitant]
     Indication: PRODUCT USED FOR UNKNOWN INDICATION
     Dates: start: 20040101
  5. RIAMET [Concomitant]
     Indication: MALARIA
     Dates: start: 20101130, end: 20101202

REACTIONS (1)
  - Hypersensitivity [Recovered/Resolved]
